FAERS Safety Report 13957674 (Version 1)
Quarter: 2017Q3

REPORT INFORMATION
  Report Type: Spontaneous
  Country: US (occurrence: US)
  Receive Date: 20170911
  Receipt Date: 20170911
  Transmission Date: 20171128
  Serious: Yes (Other)
  Sender: FDA-Public Use
  Company Number: US-ROCHE-1130849

PATIENT
  Sex: Male

DRUGS (8)
  1. RITUXAN [Suspect]
     Active Substance: RITUXIMAB
     Indication: WALDENSTROM^S MACROGLOBULINAEMIA
     Route: 065
  2. PROCRIT [Concomitant]
     Active Substance: ERYTHROPOIETIN
     Route: 058
  3. MELPHALAN. [Concomitant]
     Active Substance: MELPHALAN
  4. TAMOXIFEN [Concomitant]
     Active Substance: TAMOXIFEN
     Dosage: DAILY
     Route: 065
  5. RITUXAN [Suspect]
     Active Substance: RITUXIMAB
     Indication: LYMPHOMA
  6. RITUXAN [Suspect]
     Active Substance: RITUXIMAB
     Indication: BREAST CANCER FEMALE
  7. CYTOXAN [Concomitant]
     Active Substance: CYCLOPHOSPHAMIDE
     Route: 042
  8. VINCRISTINE [Concomitant]
     Active Substance: VINCRISTINE
     Route: 042

REACTIONS (4)
  - Anaemia [Recovering/Resolving]
  - Fatigue [Unknown]
  - Rash [Unknown]
  - Neutropenia [Recovered/Resolved]
